FAERS Safety Report 6960342-2 (Version None)
Quarter: 2010Q3

REPORT INFORMATION
  Report Type: 
  Country: None (occurrence: None)
  Receive Date: 20100901
  Receipt Date: 20100825
  Transmission Date: 20110219
  Serious: Yes (Hospitalization)
  Sender: FDA-Public Use
  Company Number: DE-SOLVAY-00310005334

PATIENT
  Age: 60 Year
  Sex: Male

DRUGS (3)
  1. REGULAR INSULIN [Concomitant]
     Indication: PRODUCT USED FOR UNKNOWN INDICATION
     Dosage: DAILY DOSE:  UNKNOWN
     Route: 065
  2. BIFITERAL SIRUP [Suspect]
     Indication: PRODUCT USED FOR UNKNOWN INDICATION
     Dosage: DAILY DOSE:  15-30 ML, AS USED: 7.5-15 ML, FREQUENCY: TWICE A DAY
     Route: 065
     Dates: start: 20100816
  3. CREON [Suspect]
     Indication: PANCREATIC INSUFFICIENCY
     Dosage: DAILY DOSE: 2 DOSAGE FORM
     Route: 048
     Dates: start: 20100101

REACTIONS (3)
  - ANXIETY DISORDER [None]
  - DEFAECATION URGENCY [None]
  - FLATULENCE [None]
